FAERS Safety Report 10420566 (Version 1)
Quarter: 2014Q3

REPORT INFORMATION
  Report Type: Spontaneous
  Country: US (occurrence: None)
  Receive Date: 20140714
  Receipt Date: 20140714
  Transmission Date: 20150326
  Serious: No
  Sender: FDA-Public Use
  Company Number: 2014US003118

PATIENT
  Age: 57 Year
  Sex: Female

DRUGS (8)
  1. PROCHLORPERAZINE. [Concomitant]
     Active Substance: PROCHLORPERAZINE
  2. FENTANYL (FENTANYL CITRATE) [Concomitant]
     Active Substance: FENTANYL CITRATE
  3. METOPROLOL [Concomitant]
     Active Substance: METOPROLOL
  4. ICLUSIG [Suspect]
     Active Substance: PONATINIB
     Indication: SOFT TISSUE SARCOMA
     Route: 048
     Dates: start: 20140304
  5. LISINOPRIL. [Concomitant]
     Active Substance: LISINOPRIL
  6. COLACE [Concomitant]
     Active Substance: DOCUSATE SODIUM
  7. AMLODIPINE (AMLODIPINE BESILATE) [Concomitant]
  8. AMBIEN [Concomitant]
     Active Substance: ZOLPIDEM TARTRATE

REACTIONS (4)
  - Alopecia [None]
  - Blood pressure increased [None]
  - Fatigue [None]
  - Off label use [None]

NARRATIVE: CASE EVENT DATE: 20140304
